FAERS Safety Report 6982224-2 (Version None)
Quarter: 2010Q3

REPORT INFORMATION
  Report Type: 
  Country: None (occurrence: None)
  Receive Date: 20100914
  Receipt Date: 20091117
  Transmission Date: 20110219
  Serious: No
  Sender: FDA-Public Use
  Company Number: US-PFIZER INC-2009300299

PATIENT
  Sex: Female

DRUGS (7)
  1. LYRICA [Suspect]
     Indication: NEUROPATHY PERIPHERAL
     Dosage: 50 MG, 2X/DAY
     Route: 048
     Dates: start: 20091002
  2. VITAMINS [Concomitant]
     Dosage: UNK
  3. ATENOLOL [Concomitant]
     Indication: HYPERTENSION
     Dosage: 25 MG, 1X/DAY
     Route: 048
     Dates: start: 20070101
  4. LIPITOR [Concomitant]
     Indication: BLOOD CHOLESTEROL INCREASED
     Dosage: 20 MG, 1X/DAY
     Route: 048
     Dates: start: 20040101
  5. BECONASE [Concomitant]
     Indication: HYPERSENSITIVITY
     Dosage: UNK
     Route: 045
  6. PULMICORT [Concomitant]
     Indication: ASTHMA
     Dosage: UNK
     Route: 045
  7. TAMOXIFEN [Concomitant]
     Indication: BREAST CANCER
     Dosage: 20 MG, 1X/DAY
     Route: 048

REACTIONS (2)
  - DEPRESSED MOOD [None]
  - DIZZINESS [None]
